FAERS Safety Report 10143994 (Version 1)
Quarter: 2014Q2

REPORT INFORMATION
  Report Type: Spontaneous
  Country: US (occurrence: US)
  Receive Date: 20140430
  Receipt Date: 20140430
  Transmission Date: 20141212
  Serious: No
  Sender: FDA-Public Use
  Company Number: US-TEVA-478267USA

PATIENT
  Sex: Female

DRUGS (3)
  1. COPAXONE [Suspect]
  2. TECFIDERA [Suspect]
     Dates: start: 201307
  3. AVONEX [Suspect]

REACTIONS (4)
  - Depression [Recovering/Resolving]
  - Affective disorder [Recovering/Resolving]
  - Flushing [Unknown]
  - Abdominal distension [Unknown]
